FAERS Safety Report 5765736-9 (Version None)
Quarter: 2008Q2

REPORT INFORMATION
  Report Type: 
  Country: None (occurrence: None)
  Receive Date: 20080606
  Receipt Date: 20080527
  Transmission Date: 20081010
  Serious: Yes (Other)
  Sender: FDA-Public Use
  Company Number: PAR_02215_2008

PATIENT
  Sex: Male

DRUGS (3)
  1. DEXAMETHASONE [Suspect]
     Indication: MULTIPLE MYELOMA
     Dosage: 1 DF 1X/2 WEEKS ORAL
     Route: 048
  2. BIAXIN [Suspect]
     Indication: MULTIPLE MYELOMA
     Dosage: 1 DF QD
  3. REVLIMID [Suspect]
     Indication: MULTIPLE MYELOMA
     Dosage: 1 DF QD

REACTIONS (1)
  - NEUROPATHY PERIPHERAL [None]
